FAERS Safety Report 5977410-4 (Version None)
Quarter: 2008Q4

REPORT INFORMATION
  Report Type: 
  Country: None (occurrence: None)
  Receive Date: 20081201
  Receipt Date: 20081201
  Transmission Date: 20090506
  Serious: No
  Sender: FDA-Public Use
  Company Number: None

PATIENT
  Age: 86 Year
  Sex: Female
  Weight: 53.5244 kg

DRUGS (1)
  1. STADOL [Suspect]
     Indication: ANALGESIA
     Dosage: IV
     Route: 042
     Dates: start: 20081128, end: 20081128

REACTIONS (6)
  - DIZZINESS [None]
  - HYPERHIDROSIS [None]
  - NAUSEA [None]
  - PARAESTHESIA [None]
  - RASH MACULAR [None]
  - RASH PRURITIC [None]
